FAERS Safety Report 17867083 (Version 1)
Quarter: 2020Q2

REPORT INFORMATION
  Report Type: Spontaneous
  Country: ID (occurrence: ID)
  Receive Date: 20200605
  Receipt Date: 20200605
  Transmission Date: 20200714
  Serious: Yes (Other)
  Sender: FDA-Public Use
  Company Number: ID-009507513-2006IDN000619

PATIENT
  Age: 26 Year
  Sex: Female

DRUGS (3)
  1. ETONOGESTREL IMPLANT- UNKNOWN [Suspect]
     Active Substance: ETONOGESTREL
     Indication: CONTRACEPTION
     Dosage: UNK
     Route: 065
  2. CARBAMAZEPINE. [Interacting]
     Active Substance: CARBAMAZEPINE
     Indication: SEIZURE
     Dosage: 200 MG, UNK
     Route: 065
  3. CARBAMAZEPINE. [Interacting]
     Active Substance: CARBAMAZEPINE
     Dosage: 400 MILLIGRAM, UNK
     Route: 065

REACTIONS (4)
  - Drug interaction [Unknown]
  - Maternal exposure during pregnancy [Unknown]
  - Normal newborn [Unknown]
  - Seizure [Unknown]
